FAERS Safety Report 16841850 (Version 1)
Quarter: 2019Q3

REPORT INFORMATION
  Report Type: Spontaneous
  Country: DE (occurrence: DE)
  Receive Date: 20190923
  Receipt Date: 20190923
  Transmission Date: 20191005
  Serious: Yes (Other)
  Sender: FDA-Public Use
  Company Number: PHHY2019DE218787

PATIENT
  Age: 86 Year
  Sex: Female

DRUGS (3)
  1. METHOTREXATE. [Suspect]
     Active Substance: METHOTREXATE
     Indication: BREAST CANCER
     Dosage: UNK, 6 TIMES
     Route: 065
     Dates: start: 2001
  2. CYCLOPHOSPHAMIDE. [Suspect]
     Active Substance: CYCLOPHOSPHAMIDE
     Indication: BREAST CANCER
     Dosage: UNK, 6 TIMES
     Route: 065
     Dates: start: 2001
  3. FLUOROURACIL. [Suspect]
     Active Substance: FLUOROURACIL
     Indication: BREAST CANCER
     Dosage: UNK, 6 TIMES
     Route: 065
     Dates: start: 2001

REACTIONS (4)
  - Metastases to bone [Unknown]
  - Metastases to chest wall [Unknown]
  - Pleural effusion [Unknown]
  - Metastases to lymph nodes [Unknown]
